FAERS Safety Report 7960245-0 (Version None)
Quarter: 2011Q4

REPORT INFORMATION
  Report Type: 
  Country: None (occurrence: None)
  Receive Date: 20111201
  Receipt Date: 20111116
  Transmission Date: 20120403
  Serious: Yes (Hospitalization, Other)
  Sender: FDA-Public Use
  Company Number: 2011AP002726

PATIENT
  Age: 35 Year
  Sex: Female

DRUGS (4)
  1. PREDNISONE [Suspect]
     Indication: RENAL TRANSPLANT
     Dosage: QD
  2. PREDNISONE [Suspect]
     Indication: IMMUNOSUPPRESSION
     Dosage: QD
  3. CYCLOSPORINE [Suspect]
     Indication: IMMUNOSUPPRESSION
     Dosage: 100 MG;BID
  4. CYCLOSPORINE [Suspect]
     Indication: RENAL TRANSPLANT
     Dosage: 100 MG;BID

REACTIONS (8)
  - SKIN ULCER [None]
  - FUSARIUM INFECTION [None]
  - B-CELL LYMPHOMA [None]
  - T-CELL LYMPHOMA [None]
  - ANAEMIA [None]
  - SUPERINFECTION BACTERIAL [None]
  - RADIATION SKIN INJURY [None]
  - ARTHROPOD BITE [None]
